FAERS Safety Report 13615093 (Version 2)
Quarter: 2017Q2

REPORT INFORMATION
  Report Type: Report from Study
  Country: ES (occurrence: ES)
  Receive Date: 20170606
  Receipt Date: 20170627
  Transmission Date: 20170830
  Serious: Yes (Other)
  Sender: FDA-Public Use
  Company Number: ES-VELOXIS PHARMACEUTICALS-2021585

PATIENT
  Age: 55 Year
  Sex: Male
  Weight: 70 kg

DRUGS (19)
  1. ENVARSUS XR [Suspect]
     Active Substance: TACROLIMUS
     Route: 048
     Dates: start: 20170504, end: 20170505
  2. ADOPORT [Concomitant]
     Active Substance: TACROLIMUS
     Dates: start: 20170502, end: 20170503
  3. PARACETAMOL [Concomitant]
     Active Substance: ACETAMINOPHEN
     Dates: start: 20170429, end: 20170508
  4. CALCIUM GLUCONATE. [Concomitant]
     Active Substance: CALCIUM GLUCONATE
     Dates: start: 20170429, end: 20170502
  5. ENVARSUS XR [Suspect]
     Active Substance: TACROLIMUS
     Route: 048
     Dates: start: 20170506, end: 20170508
  6. ENVARSUS XR [Suspect]
     Active Substance: TACROLIMUS
     Route: 048
     Dates: start: 20170509, end: 20170511
  7. IPRATROPIO [Concomitant]
     Active Substance: IPRATROPIUM BROMIDE
     Dates: start: 20170429, end: 20170502
  8. FUROSEMIDE. [Concomitant]
     Active Substance: FUROSEMIDE
     Dates: start: 20170502, end: 20170524
  9. ENVARSUS XR [Suspect]
     Active Substance: TACROLIMUS
     Route: 048
     Dates: start: 20170518
  10. OMEPRAZOLE. [Concomitant]
     Active Substance: OMEPRAZOLE
     Dates: start: 20170429
  11. VALGANCICLOVIR. [Concomitant]
     Active Substance: VALGANCICLOVIR
     Dates: start: 20170509
  12. VITAMIN K [Concomitant]
     Active Substance: PHYTONADIONE
     Dates: start: 20170429, end: 20170502
  13. HIBOR [Concomitant]
     Active Substance: BEMIPARIN SODIUM
     Dates: start: 20170501, end: 20170508
  14. INSULIN [Concomitant]
     Active Substance: INSULIN NOS
     Dates: start: 20170429, end: 20170502
  15. ENVARSUS XR [Suspect]
     Active Substance: TACROLIMUS
     Indication: LIVER TRANSPLANT
     Route: 048
     Dates: start: 20170512, end: 20170517
  16. CEFTAZIDIMA [Concomitant]
     Active Substance: CEFTAZIDIME
     Dates: start: 20170429, end: 20170501
  17. TEICOPLANINA [Concomitant]
     Active Substance: TEICOPLANIN
     Dates: start: 20170430, end: 20170501
  18. CALCIUM/VITAMIN D [Concomitant]
     Active Substance: CALCIUM\VITAMIN D
     Dates: start: 20170509
  19. FOLIC ACID. [Concomitant]
     Active Substance: FOLIC ACID
     Dates: start: 20170509

REACTIONS (2)
  - Tremor [Recovered/Resolved]
  - Renal failure [Not Recovered/Not Resolved]

NARRATIVE: CASE EVENT DATE: 20170517
